FAERS Safety Report 13834470 (Version 1)
Quarter: 2017Q3

REPORT INFORMATION
  Report Type: Spontaneous
  Country: US (occurrence: US)
  Receive Date: 20170804
  Receipt Date: 20170804
  Transmission Date: 20171127
  Serious: Yes (Hospitalization)
  Sender: FDA-Public Use
  Company Number: PHHY2017US113039

PATIENT
  Age: 41 Year
  Sex: Female

DRUGS (3)
  1. FUROSEMIDE. [Suspect]
     Active Substance: FUROSEMIDE
     Indication: PRODUCT USED FOR UNKNOWN INDICATION
     Dosage: 100 MG, QD
     Route: 065
  2. SPIRONOLACTONE. [Suspect]
     Active Substance: SPIRONOLACTONE
     Indication: PRODUCT USED FOR UNKNOWN INDICATION
     Dosage: 200 MG, QD
     Route: 065
  3. METHADONE [Suspect]
     Active Substance: METHADONE HYDROCHLORIDE
     Indication: PRODUCT USED FOR UNKNOWN INDICATION
     Dosage: 82 MG, QD
     Route: 065

REACTIONS (10)
  - Ventricular tachycardia [Unknown]
  - Unresponsive to stimuli [Recovered/Resolved]
  - Confusional state [Unknown]
  - Tremor [Recovered/Resolved]
  - Sinus rhythm [Unknown]
  - Tension [Recovered/Resolved]
  - Postural tremor [Recovered/Resolved]
  - Electrocardiogram QT prolonged [Unknown]
  - Seizure like phenomena [Recovered/Resolved]
  - Torsade de pointes [Unknown]
